FAERS Safety Report 12471080 (Version 3)
Quarter: 2016Q3

REPORT INFORMATION
  Report Type: Report from Study
  Country: FR (occurrence: FR)
  Receive Date: 20160616
  Receipt Date: 20160707
  Transmission Date: 20161109
  Serious: Yes (Death, Hospitalization)
  Sender: FDA-Public Use
  Company Number: FR-ROCHE-1776651

PATIENT
  Age: 64 Year
  Sex: Male
  Weight: 67 kg

DRUGS (4)
  1. PACLITAXEL. [Suspect]
     Active Substance: PACLITAXEL
     Indication: NON-SMALL CELL LUNG CANCER STAGE IV
     Dosage: DOSAGE TAKEN FROM PROTOCOL: DAY 1 OF EACH 21-DAY CYCLE FOR 4 OR 6 CYCLES?DATE OF THE MOST RECENT DOS
     Route: 042
     Dates: start: 20160105
  2. CARBOPLATIN. [Suspect]
     Active Substance: CARBOPLATIN
     Indication: NON-SMALL CELL LUNG CANCER STAGE IV
     Dosage: DOSAGE TAKEN FROM PROTOCOL: AREA UNDER THE CONCENTRATION CURVE (AUC) 6 ON DAY 1 OF EACH 21-DAY CYCLE
     Route: 042
     Dates: start: 20160105
  3. EFFERALGAN CODEINE [Concomitant]
     Active Substance: ACETAMINOPHEN\CODEINE PHOSPHATE
     Indication: COUGH
     Route: 065
     Dates: start: 20151216
  4. ATEZOLIZUMAB [Suspect]
     Active Substance: ATEZOLIZUMAB
     Indication: NON-SMALL CELL LUNG CANCER STAGE IV
     Route: 042
     Dates: start: 20160105, end: 20160601

REACTIONS (1)
  - Pneumonitis [Fatal]

NARRATIVE: CASE EVENT DATE: 20160614
